FAERS Safety Report 5150269-3 (Version None)
Quarter: 2006Q4

REPORT INFORMATION
  Report Type: 
  Country: None (occurrence: None)
  Receive Date: 20061108
  Receipt Date: 20061021
  Transmission Date: 20070319
  Serious: Yes (Hospitalization, Congenital Anomaly, Other)
  Sender: FDA-Public Use
  Company Number: DE-2006-021733

PATIENT
  Age: 1 Month
  Sex: Male
  Weight: 5.9 kg

DRUGS (2)
  1. BETAFERON (INTERFERON BETA - 1B) INJECTION, 250UG [Suspect]
     Indication: MULTIPLE SCLEROSIS
     Dosage: 250 U8G/DAY, EVERY 2D
     Dates: start: 20051013, end: 20051215
  2. D-FLUORETTEN (CHOLESTEROL) [Concomitant]

REACTIONS (22)
  - CENTRAL NERVOUS SYSTEM LESION [None]
  - CEREBRAL ISCHAEMIA [None]
  - CONVULSION NEONATAL [None]
  - CYANOSIS NEONATAL [None]
  - DEVELOPMENTAL DELAY [None]
  - DRUG EXPOSURE DURING PREGNANCY [None]
  - DYSTROPHIA MYOTONICA [None]
  - ENCEPHALOPATHY NEONATAL [None]
  - FEEDING DISORDER NEONATAL [None]
  - HAEMOGLOBIN DECREASED [None]
  - HYPOTENSION [None]
  - HYPOTONIA NEONATAL [None]
  - INGUINAL HERNIA [None]
  - JAUNDICE NEONATAL [None]
  - MUSCLE SPASMS [None]
  - NERVOUS SYSTEM DISORDER [None]
  - PACHYGYRIA [None]
  - PCO2 INCREASED [None]
  - PRADER-WILLI SYNDROME [None]
  - PREMATURE BABY [None]
  - RESPIRATORY DISORDER NEONATAL [None]
  - SCREAMING [None]
